FAERS Safety Report 24324531 (Version 1)
Quarter: 2024Q3

REPORT INFORMATION
  Report Type: Spontaneous
  Country: JP (occurrence: JP)
  Receive Date: 20240916
  Receipt Date: 20240916
  Transmission Date: 20241016
  Serious: Yes (Death)
  Sender: SPECGX
  Company Number: JP-SPECGX-T202401875

PATIENT
  Age: 9 Decade
  Sex: Male

DRUGS (6)
  1. METHADONE [Suspect]
     Active Substance: METHADONE HYDROCHLORIDE
     Indication: Cancer pain
     Dosage: 15 MILLIGRAM, QD
     Route: 048
     Dates: start: 202407
  2. METHADONE [Suspect]
     Active Substance: METHADONE HYDROCHLORIDE
     Dosage: UNK (TAPERED)
     Route: 048
  3. OPDIVO [Suspect]
     Active Substance: NIVOLUMAB
     Indication: Neoplasm malignant
     Dosage: UNK
     Route: 065
  4. OXYCODONE HYDROCHLORIDE TRIHYDRATE [Suspect]
     Active Substance: OXYCODONE HYDROCHLORIDE TRIHYDRATE
     Indication: Cancer pain
     Dosage: 30 MILLIGRAM
     Route: 048
  5. OXYCODONE HYDROCHLORIDE TRIHYDRATE [Suspect]
     Active Substance: OXYCODONE HYDROCHLORIDE TRIHYDRATE
     Dosage: 40 MILLIGRAM
     Route: 048
  6. OXYCODONE HYDROCHLORIDE TRIHYDRATE [Suspect]
     Active Substance: OXYCODONE HYDROCHLORIDE TRIHYDRATE
     Dosage: 60 MILLIGRAM
     Route: 048

REACTIONS (3)
  - Neoplasm malignant [Fatal]
  - Malignant neoplasm progression [Fatal]
  - Somnolence [Not Recovered/Not Resolved]

NARRATIVE: CASE EVENT DATE: 20240701
